FAERS Safety Report 21293179 (Version 1)
Quarter: 2022Q3

REPORT INFORMATION
  Report Type: Spontaneous
  Country: US (occurrence: US)
  Receive Date: 20220905
  Receipt Date: 20220905
  Transmission Date: 20221027
  Serious: Yes (Other)
  Sender: FDA-Public Use
  Company Number: US-CIPLA LTD.-2022US05289

PATIENT
  Age: 4 Year

DRUGS (1)
  1. VIGABATRIN [Suspect]
     Active Substance: VIGABATRIN
     Indication: Tuberous sclerosis complex
     Dosage: UNK
     Route: 065

REACTIONS (2)
  - Optic atrophy [Unknown]
  - Ocular toxicity [Unknown]
